FAERS Safety Report 6651190-1 (Version None)
Quarter: 2010Q1

REPORT INFORMATION
  Report Type: 
  Country: None (occurrence: None)
  Receive Date: 20100325
  Receipt Date: 20100318
  Transmission Date: 20100710
  Serious: Yes (Congenital Anomaly)
  Sender: FDA-Public Use
  Company Number: FR-ABBOTT-10P-056-0632640-00

PATIENT
  Age: 1 Day
  Sex: Male

DRUGS (1)
  1. SODIUM VALPROATE [Suspect]
     Indication: DRUG EXPOSURE DURING PREGNANCY
     Route: 064

REACTIONS (4)
  - BREAST MALFORMATION [None]
  - FOETAL ANTICONVULSANT SYNDROME [None]
  - HYPOSPADIAS [None]
  - SKULL MALFORMATION [None]
